FAERS Safety Report 17583764 (Version 1)
Quarter: 2020Q1

REPORT INFORMATION
  Report Type: Spontaneous
  Country: CN (occurrence: CN)
  Receive Date: 20200326
  Receipt Date: 20200326
  Transmission Date: 20200409
  Serious: Yes (Other)
  Sender: FDA-Public Use
  Company Number: CN-ROCHE-2570539

PATIENT
  Age: 69 Year
  Sex: Male

DRUGS (14)
  1. FLUDARABINE [Concomitant]
     Active Substance: FLUDARABINE PHOSPHATE
     Route: 065
     Dates: start: 20150505
  2. CYCLOPHOSPHAMIDE. [Concomitant]
     Active Substance: CYCLOPHOSPHAMIDE
     Indication: SPLENIC MARGINAL ZONE LYMPHOMA
     Route: 065
     Dates: start: 20190405, end: 2019
  3. CYTARABINE. [Concomitant]
     Active Substance: CYTARABINE
     Indication: SPLENIC MARGINAL ZONE LYMPHOMA
     Dosage: 250MG
     Route: 065
     Dates: start: 20200101
  4. CYCLOPHOSPHAMIDE. [Concomitant]
     Active Substance: CYCLOPHOSPHAMIDE
     Route: 065
     Dates: start: 20190505
  5. LENALIDOMIDE [Concomitant]
     Active Substance: LENALIDOMIDE
     Indication: SPLENIC MARGINAL ZONE LYMPHOMA
     Route: 048
     Dates: start: 20190720
  6. FLUDARABINE [Concomitant]
     Active Substance: FLUDARABINE PHOSPHATE
     Route: 065
     Dates: start: 20190720
  7. DEXAMETHASONE. [Concomitant]
     Active Substance: DEXAMETHASONE
     Indication: SPLENIC MARGINAL ZONE LYMPHOMA
     Dosage: 30MG
     Route: 065
     Dates: start: 20200101
  8. PREDNISONE. [Concomitant]
     Active Substance: PREDNISONE
     Indication: SPLENIC MARGINAL ZONE LYMPHOMA
     Dosage: 120MG
     Route: 065
     Dates: start: 20200101
  9. BENDAMUSTINE [Concomitant]
     Active Substance: BENDAMUSTINE
     Indication: SPLENIC MARGINAL ZONE LYMPHOMA
     Dosage: FOR 2 DAYS
     Route: 065
     Dates: start: 20200309
  10. RITUXIMAB. [Suspect]
     Active Substance: RITUXIMAB
     Indication: SPLENIC MARGINAL ZONE LYMPHOMA
     Dosage: ON DAY 0
     Route: 065
     Dates: start: 20190405, end: 2019
  11. VINDESINE [Concomitant]
     Active Substance: VINDESINE
     Indication: SPLENIC MARGINAL ZONE LYMPHOMA
     Dosage: 4MG
     Route: 065
     Dates: start: 20200101
  12. FLUDARABINE [Concomitant]
     Active Substance: FLUDARABINE PHOSPHATE
     Indication: SPLENIC MARGINAL ZONE LYMPHOMA
     Dosage: ON DAY 0
     Route: 065
     Dates: start: 20190405, end: 2019
  13. CYCLOPHOSPHAMIDE. [Concomitant]
     Active Substance: CYCLOPHOSPHAMIDE
     Route: 065
     Dates: start: 20190720
  14. DAUNORUBICIN [Concomitant]
     Active Substance: DAUNORUBICIN
     Indication: SPLENIC MARGINAL ZONE LYMPHOMA
     Dosage: 40MG
     Route: 065
     Dates: start: 20200101

REACTIONS (7)
  - Intentional product use issue [Unknown]
  - Chest discomfort [Unknown]
  - Hepatomegaly [Unknown]
  - White blood cell count increased [Unknown]
  - Off label use [Unknown]
  - Dyspnoea [Unknown]
  - Drug hypersensitivity [Unknown]
